FAERS Safety Report 6302845-X (Version None)
Quarter: 2009Q3

REPORT INFORMATION
  Report Type: 
  Country: None (occurrence: None)
  Receive Date: 20090810
  Receipt Date: 20090330
  Transmission Date: 20100115
  Serious: No
  Sender: FDA-Public Use
  Company Number: US-TYCO HEALTHCARE/MALLINCKRODT-T200900780

PATIENT
  Sex: Male

DRUGS (2)
  1. MORPHINE [Suspect]
     Dosage: UNK
     Dates: start: 20090327, end: 20090301
  2. MORPHINE SULFATE [Concomitant]

REACTIONS (1)
  - DYSPNOEA [None]
